FAERS Safety Report 20843789 (Version 4)
Quarter: 2023Q2

REPORT INFORMATION
  Report Type: Spontaneous
  Country: US (occurrence: US)
  Receive Date: 20220518
  Receipt Date: 20230517
  Transmission Date: 20230722
  Serious: Yes (Hospitalization, Other)
  Sender: FDA-Public Use
  Company Number: US-PFIZER INC-202200699902

PATIENT
  Age: 90 Year
  Sex: Male
  Weight: 56.25 kg

DRUGS (4)
  1. VYNDAMAX [Suspect]
     Active Substance: TAFAMIDIS
     Indication: Amyloidosis
     Dosage: 61 MG, 1X/DAY
     Route: 048
     Dates: start: 2022
  2. VYNDAMAX [Suspect]
     Active Substance: TAFAMIDIS
     Indication: Cardiac failure congestive
  3. MILRINONE [Suspect]
     Active Substance: MILRINONE
     Indication: Cardiac failure congestive
     Dosage: 200 UG (200MCG 125ML INFUSION A DRIP EVERY MINUTES. CONSTANT 24/7 INFUSION.)
     Dates: start: 2022
  4. MILRINONE [Suspect]
     Active Substance: MILRINONE
     Indication: Amyloidosis

REACTIONS (3)
  - Fall [Unknown]
  - Hip fracture [Unknown]
  - Off label use [Unknown]

NARRATIVE: CASE EVENT DATE: 20220101
